FAERS Safety Report 6400254-6 (Version None)
Quarter: 2009Q4

REPORT INFORMATION
  Report Type: 
  Country: None (occurrence: None)
  Receive Date: 20091014
  Receipt Date: 20091008
  Transmission Date: 20100525
  Serious: Yes (Hospitalization)
  Sender: FDA-Public Use
  Company Number: IN-ABBOTT-09P-078-0601478-00

PATIENT
  Age: 53 Year
  Sex: Male

DRUGS (3)
  1. VALPROATE SODIUM [Suspect]
     Indication: BIPOLAR DISORDER
  2. VALPROATE SODIUM [Suspect]
     Dosage: 400MG DIVIDED DOSE
  3. VALPROATE SODIUM [Suspect]

REACTIONS (2)
  - DELIRIUM [None]
  - HYPERAMMONAEMIA [None]
